FAERS Safety Report 6663159-1 (Version None)
Quarter: 2010Q2

REPORT INFORMATION
  Report Type: 
  Country: None (occurrence: None)
  Receive Date: 20100401
  Receipt Date: 20100323
  Transmission Date: 20101027
  Serious: Yes (Hospitalization)
  Sender: FDA-Public Use
  Company Number: DK-ASTRAZENECA-2010SE13051

PATIENT

DRUGS (1)
  1. CARBOCAINE [Suspect]
     Indication: LOCAL ANAESTHESIA

REACTIONS (1)
  - DRUG TOXICITY [None]
